FAERS Safety Report 22240112 (Version 1)
Quarter: 2023Q2

REPORT INFORMATION
  Report Type: Spontaneous
  Country: CA (occurrence: CA)
  Receive Date: 20230421
  Receipt Date: 20230421
  Transmission Date: 20230721
  Serious: Yes (Other)
  Sender: FDA-Public Use
  Company Number: CA-PFIZER INC-202300163548

PATIENT
  Age: 61 Year
  Sex: Male

DRUGS (28)
  1. PAXLOVID [Interacting]
     Active Substance: NIRMATRELVIR\RITONAVIR
     Indication: COVID-19 treatment
     Dosage: 1 DF, 1X/DAY
     Route: 048
  2. SIMVASTATIN [Interacting]
     Active Substance: SIMVASTATIN
  3. AMOXICILLIN [Concomitant]
     Active Substance: AMOXICILLIN
  4. ASPIRIN [Concomitant]
     Active Substance: ASPIRIN
  5. CLONAZEPAM [Concomitant]
     Active Substance: CLONAZEPAM
  6. DIMENHYDRINATE [Concomitant]
     Active Substance: DIMENHYDRINATE
  7. DOXEPIN [Concomitant]
     Active Substance: DOXEPIN
  8. DOXYCYCLINE [Concomitant]
     Active Substance: DOXYCYCLINE
  9. FUROSEMIDE [Concomitant]
     Active Substance: FUROSEMIDE
  10. INSULIN GLARGINE [Concomitant]
     Active Substance: INSULIN GLARGINE
  11. IRON [Concomitant]
     Active Substance: IRON
  12. JARDIANCE [Concomitant]
     Active Substance: EMPAGLIFLOZIN
  13. KETAMINE [Concomitant]
     Active Substance: KETAMINE
  14. INSULIN LISPRO [Concomitant]
     Active Substance: INSULIN LISPRO
  15. METFORMIN\SITAGLIPTIN [Concomitant]
     Active Substance: METFORMIN\SITAGLIPTIN
  16. MIDAZOLAM [Concomitant]
     Active Substance: MIDAZOLAM
  17. MORPHINE [Concomitant]
     Active Substance: MORPHINE
  18. ISOSORBIDE DINITRATE [Concomitant]
     Active Substance: ISOSORBIDE DINITRATE
  19. ONDANSETRON [Concomitant]
     Active Substance: ONDANSETRON
  20. PANTOPRAZOLE [Concomitant]
     Active Substance: PANTOPRAZOLE
  21. PERINDOPRIL [Concomitant]
     Active Substance: PERINDOPRIL
  22. PREGABALIN [Concomitant]
     Active Substance: PREGABALIN
  23. PROPOFOL [Concomitant]
     Active Substance: PROPOFOL
  24. PROPRANOLOL [Concomitant]
     Active Substance: PROPRANOLOL HYDROCHLORIDE
  25. ALBUTEROL [Concomitant]
     Active Substance: ALBUTEROL
  26. SPIRONOLACTONE [Concomitant]
     Active Substance: SPIRONOLACTONE
  27. TRANEXAMIC ACID [Concomitant]
     Active Substance: TRANEXAMIC ACID
  28. TYLENOL [Concomitant]
     Active Substance: ACETAMINOPHEN

REACTIONS (10)
  - Contraindicated product administered [Unknown]
  - Drug interaction [Recovered/Resolved]
  - Rhabdomyolysis [Recovered/Resolved]
  - Acute kidney injury [Recovered/Resolved]
  - Blood creatine phosphokinase increased [Recovered/Resolved]
  - Fall [Recovered/Resolved]
  - Gait inability [Recovered/Resolved]
  - Liver function test increased [Recovered/Resolved]
  - Off label use [Unknown]
  - Product use issue [Unknown]
